FAERS Safety Report 9323478 (Version 1)
Quarter: 2013Q2

REPORT INFORMATION
  Report Type: Spontaneous
  Country: US (occurrence: US)
  Receive Date: 20130603
  Receipt Date: 20130603
  Transmission Date: 20140414
  Serious: No
  Sender: FDA-Public Use
  Company Number: US-PFIZER INC-2013167309

PATIENT
  Age: 53 Year
  Sex: Female
  Weight: 99.77 kg

DRUGS (12)
  1. LYRICA [Suspect]
     Indication: FIBROMYALGIA
     Dosage: 75 MG, 2X/DAY
     Route: 048
     Dates: start: 2008
  2. LYRICA [Suspect]
     Dosage: 150 MG, 3X/DAY
     Route: 048
  3. LYRICA [Suspect]
     Dosage: 150 MG, 3X/DAY
     Route: 048
  4. CETIRIZINE [Concomitant]
     Indication: HYPERSENSITIVITY
     Dosage: 10 MG, UNK
  5. METFORMIN [Concomitant]
     Indication: DIABETES MELLITUS
     Dosage: 1000 MG, 2X/DAY
  6. LOSARTAN POTASSIUM [Concomitant]
     Indication: HYPERTENSION
     Dosage: 25 MG, 1X/DAY
  7. BUPROPION XL [Concomitant]
     Indication: DEPRESSION
     Dosage: 150 MG, UNK
  8. CYMBALTA [Concomitant]
     Indication: DEPRESSION
     Dosage: 60 MG, UNK
  9. NEXIUM [Concomitant]
     Indication: GASTROOESOPHAGEAL REFLUX DISEASE
     Dosage: 40 MG, UNK
  10. ATORVASTATIN [Concomitant]
     Indication: BLOOD CHOLESTEROL INCREASED
     Dosage: 40 MG, UNK
  11. METHOCARBAMOL [Concomitant]
     Indication: MUSCLE DISORDER
     Dosage: 750 MG, AS NEEDED
  12. HYDROCODONE W/ACETAMINOPHEN [Concomitant]
     Dosage: [HYDROCODONE 7.5MG] /[ACETAMINOPHEN 325 MG], AS NEEDED

REACTIONS (2)
  - Hypersensitivity [Recovered/Resolved]
  - Pain [Recovered/Resolved]
